FAERS Safety Report 7437397-4 (Version None)
Quarter: 2011Q2

REPORT INFORMATION
  Report Type: 
  Country: None (occurrence: None)
  Receive Date: 20110426
  Receipt Date: 20110414
  Transmission Date: 20111010
  Serious: Yes (Other)
  Sender: FDA-Public Use
  Company Number: PHHY2011EC32014

PATIENT
  Sex: Female

DRUGS (5)
  1. CALCIUM [Concomitant]
     Indication: OSTEOPOROSIS
  2. ACLASTA [Suspect]
     Indication: OSTEOPOROSIS
     Dosage: 5 MG/100ML
     Route: 042
     Dates: start: 20101001
  3. LEVOTHYROXINE SODIUM [Concomitant]
     Indication: HYPOTHYROIDISM
  4. NSAID'S [Concomitant]
     Indication: ELECTROMYOGRAM ABNORMAL
  5. NSAID'S [Concomitant]
     Indication: PAIN

REACTIONS (2)
  - VITREOUS DETACHMENT [None]
  - VISION BLURRED [None]
